FAERS Safety Report 11987978 (Version 3)
Quarter: 2020Q3

REPORT INFORMATION
  Report Type: Spontaneous
  Country: JP (occurrence: JP)
  Receive Date: 20160202
  Receipt Date: 20200803
  Transmission Date: 20201102
  Serious: Yes (Death, Other)
  Sender: FDA-Public Use
  Company Number: PHJP2016JP002081

PATIENT
  Age: 54 Year
  Sex: Male

DRUGS (8)
  1. OXYCODONE HYDROCHLORIDE. [Concomitant]
     Active Substance: OXYCODONE HYDROCHLORIDE
     Indication: CANCER PAIN
     Dosage: 2.5 MG, PRN
     Route: 048
     Dates: start: 20151106, end: 20151207
  2. PRAMIEL [Concomitant]
     Indication: NAUSEA
     Dosage: 5 MG
     Route: 048
  3. OXIFAST [Concomitant]
     Active Substance: OXYCODONE
     Indication: CANCER PAIN
     Dosage: UNK
     Route: 041
     Dates: start: 20151207, end: 20151208
  4. ZOLEDRONIC ACID [Concomitant]
     Active Substance: ZOLEDRONIC ACID
     Indication: HYPERCALCAEMIA
     Dosage: 4 MG
     Route: 041
     Dates: start: 20151203, end: 20151203
  5. OXIFAST [Concomitant]
     Active Substance: OXYCODONE
     Indication: DYSPNOEA
  6. OXYCONTIN [Concomitant]
     Active Substance: OXYCODONE HYDROCHLORIDE
     Indication: CANCER PAIN
     Dosage: 5 MG
     Route: 048
     Dates: start: 20151108, end: 20151207
  7. SINGULAIR [Concomitant]
     Active Substance: MONTELUKAST SODIUM
     Indication: ASTHMA
     Dosage: UNK
     Route: 048
  8. VOTRIENT [Suspect]
     Active Substance: PAZOPANIB HYDROCHLORIDE
     Indication: RENAL CELL CARCINOMA
     Dosage: 800 MG, QD
     Route: 048
     Dates: start: 20151109, end: 20151127

REACTIONS (21)
  - Jaundice [Fatal]
  - Metastases to liver [Fatal]
  - Disseminated intravascular coagulation [Fatal]
  - Mental status changes [Unknown]
  - Tumour associated fever [Fatal]
  - Malignant neoplasm progression [Fatal]
  - Hepatic encephalopathy [Fatal]
  - Decreased appetite [Fatal]
  - Haemoglobin decreased [Fatal]
  - Platelet count decreased [Fatal]
  - Renal cancer [Fatal]
  - Concomitant disease progression [Fatal]
  - Dyspnoea [Fatal]
  - Hepatic failure [Fatal]
  - Fatigue [Fatal]
  - Nausea [Fatal]
  - Disorientation [Fatal]
  - Blood bilirubin increased [Fatal]
  - Anaemia [Fatal]
  - Gallbladder enlargement [Fatal]
  - Renal impairment [Fatal]

NARRATIVE: CASE EVENT DATE: 20151203
